FAERS Safety Report 7976611-3 (Version None)
Quarter: 2011Q4

REPORT INFORMATION
  Report Type: 
  Country: None (occurrence: None)
  Receive Date: 20111213
  Receipt Date: 20111028
  Transmission Date: 20120403
  Serious: No
  Sender: FDA-Public Use
  Company Number: US-AMGEN-USASP2011056198

PATIENT
  Age: 46 Year
  Sex: Male

DRUGS (2)
  1. ARAVA [Concomitant]
     Dosage: UNK
     Dates: start: 20090101
  2. ENBREL [Suspect]
     Indication: RHEUMATOID ARTHRITIS
     Dosage: 50 MG, QWK
     Dates: start: 20110628

REACTIONS (2)
  - PRURITUS [None]
  - RASH PUSTULAR [None]
